FAERS Safety Report 13966240 (Version 2)
Quarter: 2018Q1

REPORT INFORMATION
  Report Type: Other
  Country: IT (occurrence: IT)
  Receive Date: 20170913
  Receipt Date: 20180310
  Transmission Date: 20180508
  Serious: Yes (Other)
  Sender: FDA-Public Use
  Company Number: IT-TAKEDA-2017TUS019117

PATIENT
  Age: 42 Year
  Sex: Male
  Weight: 100 kg

DRUGS (4)
  1. RISPERDAL [Suspect]
     Active Substance: RISPERIDONE
     Indication: INTENTIONAL SELF-INJURY
     Dosage: 60 MG, QD
     Route: 048
     Dates: start: 20170814, end: 20170814
  2. BRINTELLIX [Suspect]
     Active Substance: VORTIOXETINE HYDROBROMIDE
     Indication: INTENTIONAL SELF-INJURY
     Dosage: 560 MG, QD
     Route: 048
     Dates: start: 20170814, end: 20170814
  3. DELORAZEPAM [Suspect]
     Active Substance: DELORAZEPAM
     Indication: INTENTIONAL SELF-INJURY
     Dosage: 40 MG, QD
     Route: 048
     Dates: start: 20170814, end: 20170814
  4. RISPERDAL [Suspect]
     Active Substance: RISPERIDONE
     Dosage: 60 MG, QD
     Route: 048
     Dates: start: 20170814, end: 20170814

REACTIONS (2)
  - Overdose [Unknown]
  - Fatigue [Unknown]

NARRATIVE: CASE EVENT DATE: 20170814
